FAERS Safety Report 9095630 (Version 1)
Quarter: 2013Q1

REPORT INFORMATION
  Report Type: Spontaneous
  Country: MX (occurrence: MX)
  Receive Date: 20130220
  Receipt Date: 20130220
  Transmission Date: 20140127
  Serious: Yes (Hospitalization)
  Sender: FDA-Public Use
  Company Number: PHHY2013MX015292

PATIENT
  Age: 85 Year
  Sex: Male

DRUGS (2)
  1. CO-DIOVAN [Suspect]
     Indication: HYPERTENSION
     Dosage: 1 DF( 160 MG VALS/12.5MG HYDROCLOR), DAILY
     Route: 048
     Dates: start: 20110919
  2. CRESTOR [Concomitant]
     Indication: BLOOD CHOLESTEROL ABNORMAL
     Dosage: 1 DF, DAILY
     Dates: start: 200701

REACTIONS (1)
  - Prostatic disorder [Recovered/Resolved]
